FAERS Safety Report 5708276-5 (Version None)
Quarter: 2008Q2

REPORT INFORMATION
  Report Type: 
  Country: None (occurrence: None)
  Receive Date: 20080417
  Receipt Date: 20080408
  Transmission Date: 20081010
  Serious: Yes (Life-Threatening, Hospitalization, Disabling, Other)
  Sender: FDA-Public Use
  Company Number: US-MERCK-0804USA00109

PATIENT
  Age: 54 Year
  Sex: Male

DRUGS (8)
  1. SINGULAIR [Suspect]
     Indication: ASTHMA
     Route: 048
     Dates: end: 20080331
  2. ADVAIR HFA [Suspect]
     Route: 065
  3. FLONASE [Concomitant]
     Route: 065
  4. ALBUTEROL [Concomitant]
     Route: 065
  5. XANAX [Concomitant]
     Route: 065
  6. DIOVAN [Concomitant]
     Route: 065
  7. VERAPAMIL [Concomitant]
     Route: 065
  8. AZMACORT [Concomitant]
     Route: 065

REACTIONS (4)
  - ANXIETY [None]
  - MOOD ALTERED [None]
  - SUICIDE ATTEMPT [None]
  - TREMOR [None]
